FAERS Safety Report 5593645-7 (Version None)
Quarter: 2008Q1

REPORT INFORMATION
  Report Type: 
  Country: None (occurrence: None)
  Receive Date: 20080116
  Receipt Date: 20080107
  Transmission Date: 20080703
  Serious: Yes (Death)
  Sender: FDA-Public Use
  Company Number: US-KINGPHARMUSA00001-K200800021

PATIENT

DRUGS (1)
  1. AVINZA [Suspect]

REACTIONS (1)
  - POTENTIATING DRUG INTERACTION [None]
